FAERS Safety Report 4751425-6 (Version None)
Quarter: 2005Q3

REPORT INFORMATION
  Report Type: 
  Country: None (occurrence: None)
  Receive Date: 20050824
  Receipt Date: 20050816
  Transmission Date: 20060218
  Serious: Yes (Death, Hospitalization)
  Sender: FDA-Public Use
  Company Number: 200512715FR

PATIENT
  Age: 95 Year
  Sex: Female

DRUGS (1)
  1. LOVENOX [Suspect]
     Route: 058
     Dates: end: 20031203

REACTIONS (9)
  - ANAEMIA [None]
  - BLOOD PRESSURE DECREASED [None]
  - CARDIOGENIC SHOCK [None]
  - DEHYDRATION [None]
  - GASTROINTESTINAL HAEMORRHAGE [None]
  - HAEMODYNAMIC INSTABILITY [None]
  - MELAENA [None]
  - MENINGITIS [None]
  - SEPSIS [None]
